FAERS Safety Report 10073979 (Version 2)
Quarter: 2016Q2

REPORT INFORMATION
  Report Type: Spontaneous
  Country: US (occurrence: US)
  Receive Date: 20140411
  Receipt Date: 20160406
  Transmission Date: 20160815
  Serious: No
  Sender: FDA-Public Use
  Company Number: US-SA-2013SA117449

PATIENT
  Age: 66 Year
  Sex: Female
  Weight: 81 kg

DRUGS (31)
  1. PREVACID SOLUTAB [Concomitant]
     Active Substance: LANSOPRAZOLE
     Dosage: DISSOLVE ONE TABLET IN MOUTH ONE TIME DAILY
  2. TRETINOIN/LIPOSOMAL TRETINOIN [Concomitant]
     Dosage: FORM: EXT CREAM?EVERY OTHER DAY
  3. CALTRATE [Concomitant]
     Active Substance: CALCIUM CARBONATE
     Route: 048
  4. NYSTATIN. [Concomitant]
     Active Substance: NYSTATIN
  5. MAXALT-MLT [Concomitant]
     Active Substance: RIZATRIPTAN BENZOATE
     Dosage: DISINTEGRATING TABLET?MAY REPEAT IN 2 HOURS IF NEEDED
     Route: 048
  6. TOPIRAMATE. [Concomitant]
     Active Substance: TOPIRAMATE
     Dosage: TAKE 1.5 TABS BY MOUTH 2 TIMES DAILY. TAKE 1 1/2 TABS (75MG) IN THE?MORNING AND NIGHTLY AT BEDTIME
  7. CLOBETASOL [Concomitant]
     Active Substance: CLOBETASOL
     Dosage: APPLY ONCE A DAY AS NEEDED
  8. FLUTICASONE [Concomitant]
     Active Substance: FLUTICASONE\FLUTICASONE PROPIONATE
     Dosage: TWO SPRAYS INTO EACH NOSTRIL DAILY
  9. ALBUTEROL SULFATE. [Concomitant]
     Active Substance: ALBUTEROL SULFATE
     Indication: WHEEZING
     Dosage: INHALE 2 PUFFS INTO THE LUNGS DOSE:2 PUFF(S)
  10. LORATADINE. [Concomitant]
     Active Substance: LORATADINE
     Route: 048
  11. NITROFURANTOIN. [Concomitant]
     Active Substance: NITROFURANTOIN
     Route: 048
  12. OLOPATADINE [Concomitant]
     Active Substance: OLOPATADINE
     Dosage: ROUTE:EYES
  13. OMEGA 3 [Concomitant]
     Active Substance: OMEGA-3 FATTY ACIDS
     Route: 048
  14. PANTOPRAZOLE [Concomitant]
     Active Substance: PANTOPRAZOLE SODIUM
     Dosage: BY MOUTH
  15. SERTRALINE [Concomitant]
     Active Substance: SERTRALINE HYDROCHLORIDE
     Route: 048
  16. SIMVASTATIN. [Concomitant]
     Active Substance: SIMVASTATIN
     Dosage: ONE TABLET BY MOUTH NIGHTLY AT BEDTIME
     Route: 048
  17. ALBUTEROL. [Concomitant]
     Active Substance: ALBUTEROL
     Dosage: ROUTE: INHALE?FORM: NUBEULIZER SOLUTION
  18. CLINDAMYCIN [Concomitant]
     Active Substance: CLINDAMYCIN\CLINDAMYCIN PHOSPHATE
  19. VOLTAREN [Concomitant]
     Active Substance: DICLOFENAC SODIUM
     Dosage: 2 G TO AFFECTED AREA 4 TIMES A DAY MAXIMUM 8G PER JOINT PER DAY
  20. HYDROCHLOROTHIAZIDE. [Concomitant]
     Active Substance: HYDROCHLOROTHIAZIDE
     Route: 048
  21. RANITIDINE. [Concomitant]
     Active Substance: RANITIDINE
     Dosage: TAKE 1 TAB BY MOUTH DAILY
     Route: 048
  22. ALLEGRA-D [Suspect]
     Active Substance: FEXOFENADINE\PSEUDOEPHEDRINE
     Indication: HYPERSENSITIVITY
     Route: 048
  23. PREDNISONE. [Concomitant]
     Active Substance: PREDNISONE
     Indication: PAIN IN EXTREMITY
     Dosage: TAKE 1 TAB BY MOUTH DAILY. AS NEEDED FOR HAND PAIN
  24. VITAMIN D3 [Concomitant]
     Active Substance: CHOLECALCIFEROL
     Dosage: TAKE 400 UNITS BY MOUTH DAILY.  2000 UNITS DAILY
     Route: 048
  25. CLOTRIMAZOLE. [Concomitant]
     Active Substance: CLOTRIMAZOLE
     Dosage: ROUTE: BY MOUTH
  26. METRONIDAZOLE. [Concomitant]
     Active Substance: METRONIDAZOLE
     Dosage: APPLY TO AFFECTED AREA TWICE DAILY
  27. FLOVENT [Concomitant]
     Active Substance: FLUTICASONE PROPIONATE
     Dosage: INHALE TWO PUFFS BY MOUTH DOSE:2 PUFF(S)
  28. VESICARE [Concomitant]
     Active Substance: SOLIFENACIN SUCCINATE
     Dosage: TAKE 1 TAB BY MOUTH DAILY
  29. ERYTHROMYCIN. [Concomitant]
     Active Substance: ERYTHROMYCIN
     Dosage: PLACE 1 APPLICATION INTO BOTH EYES AT BEDTIME FOR 90 DAYS
  30. MECLIZINE [Concomitant]
     Active Substance: MECLIZINE HYDROCHLORIDE
     Indication: DIZZINESS
     Dosage: 3 TIMES DAILY AS NEEDED
     Route: 048
  31. MONTELUKAST [Concomitant]
     Active Substance: MONTELUKAST SODIUM
     Route: 048

REACTIONS (1)
  - Migraine [Not Recovered/Not Resolved]
